FAERS Safety Report 4622664-X (Version None)
Quarter: 2005Q1

REPORT INFORMATION
  Report Type: 
  Country: None (occurrence: None)
  Receive Date: 20050330
  Receipt Date: 20041209
  Transmission Date: 20050727
  Serious: No
  Sender: FDA-Public Use
  Company Number: US-BRISTOL-MYERS SQUIBB COMPANY-12791596

PATIENT
  Age: 57 Year
  Sex: Male

DRUGS (4)
  1. REYATAZ [Suspect]
     Indication: HIV INFECTION
     Route: 048
     Dates: start: 20041201, end: 20041209
  2. COMBIVIR [Concomitant]
  3. DAPSONE [Concomitant]
  4. VITAMINS [Concomitant]

REACTIONS (1)
  - RASH MACULO-PAPULAR [None]
